FAERS Safety Report 7723310-9 (Version None)
Quarter: 2011Q3

REPORT INFORMATION
  Report Type: 
  Country: None (occurrence: None)
  Receive Date: 20110901
  Receipt Date: 20110901
  Transmission Date: 20111222
  Serious: Yes (Life-Threatening, Hospitalization)
  Sender: FDA-Public Use
  Company Number: None

PATIENT
  Sex: Female
  Weight: 44.8 kg

DRUGS (2)
  1. AZATHIOPRINE [Concomitant]
     Indication: CROHN'S DISEASE
     Dosage: 50MG
     Route: 048
     Dates: start: 20080101, end: 20110824
  2. INFLIXIMAB [Suspect]
     Indication: CROHN'S DISEASE
     Dosage: 400MG
     Route: 042
     Dates: start: 20100901, end: 20110824

REACTIONS (3)
  - EXTRADURAL ABSCESS [None]
  - SINUS DISORDER [None]
  - STREPTOCOCCUS TEST POSITIVE [None]
